FAERS Safety Report 15669374 (Version 10)
Quarter: 2019Q3

REPORT INFORMATION
  Report Type: Spontaneous
  Country: CA (occurrence: CA)
  Receive Date: 20181129
  Receipt Date: 20190717
  Transmission Date: 20191004
  Serious: Yes (Hospitalization, Other)
  Sender: FDA-Public Use
  Company Number: CA-CELLTRION INC.-2018CA018019

PATIENT

DRUGS (20)
  1. INFLECTRA [Suspect]
     Active Substance: INFLIXIMAB-DYYB
     Dosage: 5 MG/KG, UNK
     Route: 042
     Dates: start: 20180606
  2. INFLECTRA [Suspect]
     Active Substance: INFLIXIMAB-DYYB
     Dosage: 7.5 MG/KG, UNK
     Route: 042
     Dates: start: 20190614
  3. ASA [Concomitant]
     Active Substance: ASPIRIN
     Dosage: 1 DF (TABLET), DAILY
     Route: 048
  4. INFLECTRA [Suspect]
     Active Substance: INFLIXIMAB-DYYB
     Dosage: 500 MG, 0, 2, 6 WEEKS AND THEN EVERY 8 WEEKS
     Route: 042
     Dates: start: 20180201
  5. INFLECTRA [Suspect]
     Active Substance: INFLIXIMAB-DYYB
     Dosage: 500 MG, 0, 2, 6 WEEKS AND THEN EVERY 8 WEEKS
     Route: 042
     Dates: start: 20180924
  6. VIT D [Concomitant]
     Active Substance: VITAMIN D NOS
     Dosage: 2 DF (TABLETS), DAILY
     Route: 048
  7. DIPHENHYDRAMINE. [Concomitant]
     Active Substance: DIPHENHYDRAMINE
     Indication: PREMEDICATION
     Dosage: 25 MG, UNK
     Dates: start: 20181203
  8. INFLECTRA [Suspect]
     Active Substance: INFLIXIMAB-DYYB
     Dosage: 500 MG, 0, 2, 6 WEEKS AND THEN EVERY 8 WEEKS
     Route: 042
     Dates: start: 20181203
  9. INFLECTRA [Suspect]
     Active Substance: INFLIXIMAB-DYYB
     Dosage: 7.5 MG/KG, UNK
     Route: 042
     Dates: start: 20190322
  10. PREDNISONE. [Concomitant]
     Active Substance: PREDNISONE
     Dosage: 8 DF (TABLETS), DAILY
     Route: 048
  11. GLUCAGON. [Concomitant]
     Active Substance: GLUCAGON
     Dosage: 1 MG, FIOLE
     Route: 065
  12. EFFEXOR [Concomitant]
     Active Substance: VENLAFAXINE HYDROCHLORIDE
     Dosage: 40 MG, DAILY
     Route: 048
  13. TEMAZEPAM. [Concomitant]
     Active Substance: TEMAZEPAM
     Dosage: 1-2 CAPS (CAPSULE), BEDTIME, AS NEEDED
     Route: 048
  14. HUMULIN R [Concomitant]
     Active Substance: INSULIN HUMAN
     Dosage: 100 UNITS/ML
     Route: 065
  15. ENOXAPARIN [Suspect]
     Active Substance: ENOXAPARIN
     Dosage: 40MG/0.4 ML SYRINGE
  16. INFLECTRA [Suspect]
     Active Substance: INFLIXIMAB-DYYB
     Indication: COLITIS ULCERATIVE
     Dosage: 7.5 MG/KG EVERY 6 WEEKS
     Route: 042
     Dates: start: 201708
  17. AZATHIOPRINE. [Concomitant]
     Active Substance: AZATHIOPRINE
     Dosage: 3 DF (TABLETS), DAILY
     Route: 048
  18. INFLECTRA [Suspect]
     Active Substance: INFLIXIMAB-DYYB
     Dosage: 500 MG, 0, 2, 6 WEEKS AND THEN EVERY 8 WEEKS
     Route: 042
     Dates: start: 20171220
  19. INFLECTRA [Suspect]
     Active Substance: INFLIXIMAB-DYYB
     Dosage: 500 MG, 0, 2, 6 WEEKS AND THEN EVERY 8 WEEKS
     Route: 042
     Dates: start: 20180409
  20. LEVODOPA [Concomitant]
     Active Substance: LEVODOPA
     Dosage: 4 DF (TABLETS), DAILY
     Route: 048

REACTIONS (16)
  - Inappropriate schedule of product administration [Unknown]
  - Diarrhoea [Recovered/Resolved]
  - Fall [Unknown]
  - Joint injury [Unknown]
  - Malaise [Unknown]
  - Gait disturbance [Unknown]
  - Incorrect dose administered [Unknown]
  - Muscular weakness [Unknown]
  - Parkinson^s disease [Not Recovered/Not Resolved]
  - Dehydration [Unknown]
  - Fatigue [Unknown]
  - Asthenia [Unknown]
  - Heart rate irregular [Unknown]
  - Off label use [Unknown]
  - Condition aggravated [Unknown]
  - Poor venous access [Unknown]

NARRATIVE: CASE EVENT DATE: 201708
